FAERS Safety Report 9463259 (Version 2)
Quarter: 2013Q3

REPORT INFORMATION
  Report Type: Report from Study
  Country: GB (occurrence: GB)
  Receive Date: 20130819
  Receipt Date: 20130819
  Transmission Date: 20140515
  Serious: Yes (Hospitalization)
  Sender: FDA-Public Use
  Company Number: GB-PFIZER INC-2013203742

PATIENT
  Age: 38 Year
  Sex: Female
  Weight: 68 kg

DRUGS (13)
  1. EPIRUBICIN HCL [Suspect]
     Indication: BREAST CANCER
     Dosage: 100 MG/M2 (190MG)
     Route: 042
     Dates: start: 20130514, end: 20130625
  2. FLUOROURACIL [Suspect]
     Indication: BREAST CANCER
     Dosage: 500 MG/M2 (900MG)
     Route: 042
     Dates: start: 20130514, end: 20130625
  3. CYCLOPHOSPHAMIDE [Suspect]
     Indication: BREAST CANCER
     Dosage: 500 MG/M2 (900MG)
     Route: 042
     Dates: start: 20130514, end: 20130625
  4. PERTUZUMAB [Suspect]
     Indication: BREAST CANCER
     Dosage: BLINDED
     Route: 042
     Dates: start: 20130716
  5. TRASTUZUMAB [Suspect]
     Indication: BREAST CANCER
     Dosage: 546 MG, CYCLIC: EVERY 3 WEEKS
     Route: 042
     Dates: start: 20130716
  6. DOCETAXEL [Suspect]
     Indication: BREAST CANCER
     Dosage: 190 MG, CYCLIC: EVERY 3 WEEKS
     Route: 042
     Dates: start: 20130716
  7. DEXAMETHASONE [Concomitant]
     Dosage: 8 MG, UNK
     Dates: start: 20130514
  8. DEXAMETHASONE [Concomitant]
     Dosage: 16 MG, UNK
     Dates: start: 20130715, end: 20130717
  9. DOMPERIDONE [Concomitant]
     Dosage: 80 MG, UNK
     Dates: start: 20130514
  10. DOMPERIDONE [Concomitant]
     Dosage: 40 MG, UNK
     Dates: start: 20130715
  11. ONDANSETRON [Concomitant]
     Dosage: 16 MG, UNK
     Dates: start: 20130514
  12. PEGFILGRASTIM [Concomitant]
     Dosage: 6 MG, UNK
     Dates: start: 20130515
  13. PARACETAMOL [Concomitant]
     Dosage: 4000 MG, UNK
     Dates: start: 20130717

REACTIONS (3)
  - Vomiting [Recovered/Resolved]
  - Neutropenia [Recovered/Resolved]
  - Fatigue [Recovered/Resolved]
